FAERS Safety Report 18597782 (Version 1)
Quarter: 2020Q4

REPORT INFORMATION
  Report Type: Spontaneous
  Country: IT (occurrence: IT)
  Receive Date: 20201209
  Receipt Date: 20201209
  Transmission Date: 20210114
  Serious: Yes (Other)
  Sender: FDA-Public Use
  Company Number: IT-GILEAD-2020-0508123

PATIENT
  Age: 46 Year
  Sex: Male

DRUGS (3)
  1. CLEXANE T [Concomitant]
     Active Substance: ENOXAPARIN SODIUM
  2. VEKLURY [Suspect]
     Active Substance: REMDESIVIR
     Indication: COVID-19
     Dosage: 1 DOSAGE FORM, QD
     Route: 042
     Dates: start: 20201105, end: 20201110
  3. DEXAMETHASONE PHOSPHATE [Concomitant]
     Active Substance: DEXAMETHASONE PHOSPHATE
     Dosage: 4 MG/ML

REACTIONS (1)
  - Sinus bradycardia [Recovering/Resolving]

NARRATIVE: CASE EVENT DATE: 20201110
